FAERS Safety Report 5928920-7 (Version None)
Quarter: 2008Q4

REPORT INFORMATION
  Report Type: 
  Country: None (occurrence: None)
  Receive Date: 20081024
  Receipt Date: 20081023
  Transmission Date: 20090506
  Serious: Yes (Hospitalization)
  Sender: FDA-Public Use
  Company Number: PHHO2001ES01629

PATIENT
  Sex: Male
  Weight: 62 kg

DRUGS (4)
  1. NEORAL [Suspect]
     Indication: LIVER TRANSPLANT
     Dosage: 150 MG, BID
  2. SIMULECT [Suspect]
     Indication: LIVER TRANSPLANT
     Dosage: 20 MG, DAY 0
     Route: 042
     Dates: start: 20000830, end: 20000830
  3. SIMULECT [Suspect]
     Dosage: 20 MG, DAY 4
     Route: 042
     Dates: start: 20000903, end: 20000903
  4. PREDNISONE TAB [Suspect]
     Indication: LIVER TRANSPLANT
     Dosage: 10 MG,

REACTIONS (5)
  - BLINDNESS [None]
  - CYTOMEGALOVIRUS CHORIORETINITIS [None]
  - EYE PAIN [None]
  - GLAUCOMA [None]
  - RETINAL VEIN THROMBOSIS [None]
